FAERS Safety Report 5794011-1 (Version None)
Quarter: 2008Q2

REPORT INFORMATION
  Report Type: 
  Country: None (occurrence: None)
  Receive Date: 20080627
  Receipt Date: 20080616
  Transmission Date: 20081010
  Serious: Yes (Hospitalization, Other)
  Sender: FDA-Public Use
  Company Number: BR-PFIZER INC-2008045957

PATIENT
  Sex: Female
  Weight: 18.9 kg

DRUGS (3)
  1. PHENYTOIN SODIUM [Suspect]
     Indication: CONVULSION
     Route: 048
     Dates: start: 20080518, end: 20080601
  2. DEPAKENE [Suspect]
     Indication: CONVULSION
  3. LAMOTRIGINE [Suspect]
     Indication: CONVULSION

REACTIONS (6)
  - AGGRESSION [None]
  - CONVULSION [None]
  - DELIRIUM [None]
  - DRUG INEFFECTIVE [None]
  - HALLUCINATION [None]
  - RASH MACULAR [None]
